FAERS Safety Report 4635784-0 (Version None)
Quarter: 2005Q2

REPORT INFORMATION
  Report Type: 
  Country: None (occurrence: None)
  Receive Date: 20050413
  Receipt Date: 20050329
  Transmission Date: 20051028
  Serious: Yes (Hospitalization, Other)
  Sender: FDA-Public Use
  Company Number: 2005033482

PATIENT
  Age: 49 Year
  Sex: Female
  Weight: 60 kg

DRUGS (9)
  1. VFEND [Suspect]
     Indication: MUCOCUTANEOUS CANDIDIASIS
  2. SERTRALINE (SERTRALINE) [Concomitant]
  3. ALL OTHER THERAPEUTIC PRODUCTS (ALL OTHER THERAPEUTIC PRODUCTS) [Concomitant]
  4. ALFACALCIDOL (AFACLCIDOL) [Concomitant]
  5. HYDROCORTISONE [Concomitant]
  6. FLUDROCORTISONE ACETATE [Concomitant]
  7. AMLOPDIPINE BESILATE (AMLODIPINE BESILATE) [Concomitant]
  8. LISINOPRIL [Concomitant]
  9. ETHINYL ESTRADIOL TAB [Concomitant]

REACTIONS (9)
  - AGITATION [None]
  - CHROMATOPSIA [None]
  - CONFUSIONAL STATE [None]
  - FEELING ABNORMAL [None]
  - HYPOCALCAEMIA [None]
  - HYPOKALAEMIA [None]
  - MUSCLE SPASMS [None]
  - PANIC REACTION [None]
  - PHOTOPHOBIA [None]
